FAERS Safety Report 9264336 (Version 1)
Quarter: 2013Q2

REPORT INFORMATION
  Report Type: Spontaneous
  Country: US (occurrence: US)
  Receive Date: 20130430
  Receipt Date: 20130430
  Transmission Date: 20140414
  Serious: Yes (Other)
  Sender: FDA-Public Use
  Company Number: US-PFIZER INC-2013130643

PATIENT
  Age: 77 Year
  Sex: Female
  Weight: 74.83 kg

DRUGS (4)
  1. TOVIAZ [Suspect]
     Indication: MICTURITION URGENCY
     Dosage: 4 MG, 1X/DAY
     Route: 048
  2. WARFARIN [Concomitant]
     Dosage: UNK
  3. TOPROL XL [Concomitant]
     Dosage: UNK
  4. ARMOUR THYROID [Concomitant]
     Dosage: UNK

REACTIONS (4)
  - Heart rate irregular [Recovered/Resolved]
  - Vision blurred [Recovered/Resolved]
  - Oedema peripheral [Recovered/Resolved]
  - Drug ineffective [Unknown]
